FAERS Safety Report 19306408 (Version 1)
Quarter: 2021Q2

REPORT INFORMATION
  Report Type: Spontaneous
  Country: US (occurrence: US)
  Receive Date: 20210525
  Receipt Date: 20210525
  Transmission Date: 20210717
  Serious: Yes (Death)
  Sender: FDA-Public Use
  Company Number: None

PATIENT
  Sex: Male

DRUGS (3)
  1. RETACRIT [Suspect]
     Active Substance: EPOETIN ALFA-EPBX
     Indication: REFRACTORY CYTOPENIA WITH UNILINEAGE DYSPLASIA
     Dosage: ?          OTHER FREQUENCY:WEEKLY IF HGB { 10;?
     Route: 058
     Dates: start: 20200724
  2. BENAZEPRIL [Concomitant]
     Active Substance: BENAZEPRIL HYDROCHLORIDE
  3. OMEPRAZOLE, MIRTAZAPINE, FOLIC ACID, CARVEDILOL, TAMSULOSIN, BUSPIRONE [Concomitant]

REACTIONS (1)
  - Death [None]
